FAERS Safety Report 6116792-X (Version None)
Quarter: 2009Q1

REPORT INFORMATION
  Report Type: 
  Country: None (occurrence: None)
  Receive Date: 20090314
  Receipt Date: 20081229
  Transmission Date: 20090719
  Serious: Yes (Death)
  Sender: FDA-Public Use
  Company Number: US-ABBOTT-08P-163-0495009-00

PATIENT
  Sex: Female
  Weight: 45.4 kg

DRUGS (12)
  1. HUMIRA [Suspect]
     Indication: RHEUMATOID ARTHRITIS
     Route: 058
     Dates: start: 20050801
  2. HUMIRA [Suspect]
     Dates: start: 20080801
  3. MIRAPEX [Concomitant]
     Indication: RESTLESS LEGS SYNDROME
     Route: 048
  4. NAMENDA [Concomitant]
     Indication: DEMENTIA ALZHEIMER'S TYPE
     Route: 048
  5. POTASSIUM CL ER [Concomitant]
     Indication: MINERAL SUPPLEMENTATION
     Route: 048
  6. ISONIAZID [Concomitant]
     Indication: DRUG USE FOR UNKNOWN INDICATION
     Route: 048
  7. LEVOTHYROXINE SODIUM [Concomitant]
     Indication: THYROID DISORDER
     Route: 048
  8. HYDROCHLOROTHIAZIDE [Concomitant]
     Indication: DRUG USE FOR UNKNOWN INDICATION
     Route: 048
  9. LOTREL [Concomitant]
     Indication: CARDIAC DISORDER
     Dosage: 10/20MG, DAILY
     Route: 048
  10. NEXIUM [Concomitant]
     Indication: GASTROOESOPHAGEAL REFLUX DISEASE
     Route: 048
  11. VICODIN [Concomitant]
     Indication: ARTHRALGIA
     Dosage: 1-2 DAILY, AS NEEDED
     Route: 048
  12. VICODIN [Concomitant]

REACTIONS (5)
  - DEATH [None]
  - MOBILITY DECREASED [None]
  - URINARY TRACT INFECTION [None]
  - WALKING AID USER [None]
  - WHEELCHAIR USER [None]
